FAERS Safety Report 6260810-5 (Version None)
Quarter: 2009Q3

REPORT INFORMATION
  Report Type: 
  Country: None (occurrence: None)
  Receive Date: 20090707
  Receipt Date: 20090622
  Transmission Date: 20100115
  Serious: Yes (Hospitalization)
  Sender: FDA-Public Use
  Company Number: 8048182

PATIENT
  Age: 81 Year

DRUGS (4)
  1. KEPPRA [Suspect]
     Indication: EPILEPSY
     Dosage: 500 MG 2/D PO
     Route: 048
     Dates: start: 20081001, end: 20090401
  2. LAMOTRIGINE [Concomitant]
  3. PHENYTOIN [Concomitant]
  4. PHENYTOIN [Concomitant]

REACTIONS (3)
  - ANGIOEDEMA [None]
  - HYPOCHROMIC ANAEMIA [None]
  - RASH [None]
